FAERS Safety Report 7121449-2 (Version None)
Quarter: 2010Q4

REPORT INFORMATION
  Report Type: 
  Country: None (occurrence: None)
  Receive Date: 20101124
  Receipt Date: 20101118
  Transmission Date: 20110411
  Serious: Yes (Hospitalization)
  Sender: FDA-Public Use
  Company Number: NL-BAXTER-2010BH025313

PATIENT
  Age: 72 Year
  Sex: Male

DRUGS (4)
  1. GAMMAGARD LIQUID [Suspect]
     Indication: CHRONIC INFLAMMATORY DEMYELINATING POLYRADICULONEUROPATHY
     Route: 042
     Dates: start: 20100907, end: 20100907
  2. GAMMAGARD LIQUID [Suspect]
     Indication: OFF LABEL USE
     Route: 042
     Dates: start: 20100907, end: 20100907
  3. GAMMAGARD LIQUID [Suspect]
     Route: 042
  4. GAMMAGARD LIQUID [Suspect]
     Route: 042

REACTIONS (2)
  - CYSTITIS NONINFECTIVE [None]
  - DEHYDRATION [None]
